FAERS Safety Report 6015565-6 (Version None)
Quarter: 2008Q4

REPORT INFORMATION
  Report Type: 
  Country: None (occurrence: None)
  Receive Date: 20081222
  Receipt Date: 20081210
  Transmission Date: 20090506
  Serious: Yes (Death, Other)
  Sender: FDA-Public Use
  Company Number: KR-PFIZER INC-2008157052

PATIENT

DRUGS (9)
  1. VFEND [Suspect]
     Indication: ASPERGILLOSIS
     Route: 042
     Dates: start: 20050905, end: 20050908
  2. VANCOMYCIN [Concomitant]
     Indication: PNEUMONIA
     Dosage: UNK
     Route: 042
     Dates: start: 20050901, end: 20050907
  3. GANCICLOVIR [Concomitant]
     Indication: CYTOMEGALOVIRUS ANTIGEN
     Dosage: UNK
     Route: 042
     Dates: start: 20050829, end: 20050908
  4. CEFEPIME [Concomitant]
     Indication: PNEUMONIA
     Dosage: UNK
     Dates: start: 20050825, end: 20050906
  5. CIPROFLOXACIN [Concomitant]
     Indication: PNEUMONIA
     Dosage: UNK
     Route: 042
     Dates: start: 20050901, end: 20050906
  6. CYCLOSPORINE [Concomitant]
     Indication: IMMUNOSUPPRESSION
     Dosage: UNK
     Route: 048
     Dates: start: 20040810, end: 20050906
  7. CYCLOSPORINE [Concomitant]
     Dosage: 25 MG, 1X/DAY
     Route: 048
     Dates: start: 20040810, end: 20050906
  8. PREDNISOLONE [Concomitant]
     Indication: MYELODYSPLASTIC SYNDROME
     Dosage: UNK
     Route: 048
     Dates: start: 20040814, end: 20050907
  9. AMBROXOL [Concomitant]
     Indication: PNEUMONIA
     Dosage: UNK
     Dates: start: 20050827, end: 20050905

REACTIONS (3)
  - DYSPNOEA [None]
  - HYPOTENSION [None]
  - MULTI-ORGAN FAILURE [None]
